FAERS Safety Report 13064280 (Version 1)
Quarter: 2016Q4

REPORT INFORMATION
  Report Type: Spontaneous
  Country: US (occurrence: US)
  Receive Date: 20161223
  Receipt Date: 20161223
  Transmission Date: 20170207
  Serious: Yes (Death, Life-Threatening, Hospitalization, Disabling, Other)
  Sender: FDA-Public Use
  Company Number: None

PATIENT
  Age: 55 Year
  Sex: Male
  Weight: 45 kg

DRUGS (1)
  1. AVASTIN [Suspect]
     Active Substance: BEVACIZUMAB
     Indication: COLON CANCER
     Route: 042
     Dates: start: 20140309, end: 20140324

REACTIONS (4)
  - Abscess [None]
  - Osteonecrosis of jaw [None]
  - Weight decreased [None]
  - Gastrointestinal perforation [None]

NARRATIVE: CASE EVENT DATE: 20140304
